FAERS Safety Report 4696329-2 (Version None)
Quarter: 2005Q2

REPORT INFORMATION
  Report Type: 
  Country: None (occurrence: None)
  Receive Date: 20050620
  Receipt Date: 20050606
  Transmission Date: 20051028
  Serious: Yes (Other)
  Sender: FDA-Public Use
  Company Number: 2005086320

PATIENT
  Age: 59 Year
  Sex: Male

DRUGS (6)
  1. VIAGRA [Suspect]
     Indication: ERECTILE DYSFUNCTION
     Dosage: (100 MG)
     Dates: start: 20020506
  2. CARDIZEM CD [Concomitant]
  3. LOZOL [Concomitant]
  4. LOTREL [Concomitant]
  5. ALTACE [Concomitant]
  6. LIPITOR [Concomitant]

REACTIONS (4)
  - BLINDNESS [None]
  - POST PROCEDURAL COMPLICATION [None]
  - RETINAL DETACHMENT [None]
  - RETINAL TEAR [None]
